FAERS Safety Report 11521620 (Version 1)
Quarter: 2015Q3

REPORT INFORMATION
  Report Type: Spontaneous
  Country: US (occurrence: US)
  Receive Date: 20150918
  Receipt Date: 20150918
  Transmission Date: 20151125
  Serious: No
  Sender: FDA-Public Use
  Company Number: US-ROCHE-721823

PATIENT
  Age: 56 Year
  Sex: Male

DRUGS (1)
  1. PEGASYS [Suspect]
     Active Substance: PEGINTERFERON ALFA-2A
     Indication: HEPATITIS C
     Route: 058

REACTIONS (14)
  - Nausea [Unknown]
  - Full blood count decreased [Unknown]
  - Dyspnoea [Unknown]
  - Muscle spasms [Unknown]
  - Malaise [Unknown]
  - Injection site erythema [Unknown]
  - Viral load increased [Unknown]
  - Myalgia [Unknown]
  - Fatigue [Unknown]
  - Chills [Unknown]
  - Product quality issue [Unknown]
  - Dehydration [Unknown]
  - Dizziness [Unknown]
  - Arthralgia [Unknown]

NARRATIVE: CASE EVENT DATE: 201005
